FAERS Safety Report 5262864-1 (Version None)
Quarter: 2007Q1

REPORT INFORMATION
  Report Type: 
  Country: None (occurrence: None)
  Receive Date: 20070312
  Receipt Date: 20070212
  Transmission Date: 20070707
  Serious: Yes (Other)
  Sender: FDA-Public Use
  Company Number: 200710551EU

PATIENT
  Sex: Female

DRUGS (5)
  1. NICORETTE [Suspect]
     Route: 002
  2. TRIMETAZIDINE [Concomitant]
     Route: 065
  3. FENOFIBRATE [Concomitant]
     Route: 065
  4. UNKNOWN MEDICATION [Concomitant]
     Route: 065
  5. AUGMENTIN [Concomitant]
     Route: 065

REACTIONS (2)
  - AGEUSIA [None]
  - TONGUE DISORDER [None]
